FAERS Safety Report 9104185 (Version 1)
Quarter: 2013Q1

REPORT INFORMATION
  Report Type: Spontaneous
  Country: CR (occurrence: CR)
  Receive Date: 20130219
  Receipt Date: 20130219
  Transmission Date: 20140127
  Serious: Yes (Hospitalization)
  Sender: FDA-Public Use
  Company Number: CR-PFIZER INC-2013058996

PATIENT
  Age: 91 Year
  Sex: Female

DRUGS (5)
  1. LYRICA [Suspect]
     Dosage: UNK
     Route: 048
     Dates: start: 20120301, end: 20121226
  2. ALTRULINE [Suspect]
  3. TRAMAL [Concomitant]
     Dosage: UNK
     Dates: start: 20120201
  4. MORPHIN [Concomitant]
     Dosage: UNK
     Dates: start: 20120201
  5. METHADONE [Concomitant]
     Dosage: UNK
     Dates: start: 20120201

REACTIONS (1)
  - Pneumonia [Recovering/Resolving]
